FAERS Safety Report 9978121 (Version 1)
Quarter: 2014Q1

REPORT INFORMATION
  Report Type: Other
  Country: US (occurrence: US)
  Receive Date: 20140306
  Receipt Date: 20140306
  Transmission Date: 20141002
  Serious: Yes (Death)
  Sender: FDA-Public Use
  Company Number: US-FRI-1000054917

PATIENT
  Age: 42 Year
  Sex: Female

DRUGS (7)
  1. LEVOTHROID [Suspect]
  2. QUETIAPINE [Suspect]
  3. BUPROPION [Suspect]
  4. FLUOXETINE [Suspect]
  5. VENLAFAXINE [Suspect]
  6. CLONAZEPAM [Suspect]
  7. NAPROXEN [Suspect]

REACTIONS (1)
  - Completed suicide [Fatal]
